FAERS Safety Report 18768002 (Version 1)
Quarter: 2021Q1

REPORT INFORMATION
  Report Type: Spontaneous
  Country: CN (occurrence: CN)
  Receive Date: 20210121
  Receipt Date: 20210121
  Transmission Date: 20210419
  Serious: Yes (Other)
  Sender: FDA-Public Use
  Company Number: CN-PFIZER INC-2021036309

PATIENT
  Age: 54 Year
  Sex: Female
  Weight: 45 kg

DRUGS (3)
  1. ZYVOX [Suspect]
     Active Substance: LINEZOLID
     Indication: INFECTION
     Dosage: 0.6 G, 2X/DAY
     Route: 048
     Dates: start: 20210106, end: 20210113
  2. TIAN CE [Concomitant]
     Indication: INFECTION
     Dosage: 0.3 G, 3X/DAY
     Route: 041
     Dates: start: 20201226, end: 20210105
  3. SODIUM CHLORIDE. [Concomitant]
     Active Substance: SODIUM CHLORIDE
     Indication: VEHICLE SOLUTION USE
     Dosage: 100 ML, 3X/DAY
     Route: 041
     Dates: start: 20201226, end: 20210105

REACTIONS (1)
  - Transaminases increased [Unknown]

NARRATIVE: CASE EVENT DATE: 20210113
